APPROVED DRUG PRODUCT: TRIAMCINOLONE ACETONIDE
Active Ingredient: TRIAMCINOLONE ACETONIDE
Strength: 0.05%
Dosage Form/Route: OINTMENT;TOPICAL
Application: A214532 | Product #001 | TE Code: AT
Applicant: CHARTWELL RX SCIENCES LLC
Approved: Jan 27, 2023 | RLD: No | RS: No | Type: RX